FAERS Safety Report 14531625 (Version 1)
Quarter: 2018Q1

REPORT INFORMATION
  Report Type: Spontaneous
  Country: US (occurrence: US)
  Receive Date: 20180214
  Receipt Date: 20180214
  Transmission Date: 20180509
  Serious: No
  Sender: FDA-Public Use
  Company Number: US-VIFOR (INTERNATIONAL) INC.-VIT-2018-01634

PATIENT
  Age: 72 Year
  Sex: Female

DRUGS (8)
  1. COLECALCIFEROL/CALCIUM CARBONATE [Concomitant]
  2. CENTRUM SILVER ADULT [Concomitant]
  3. LIPITOR [Concomitant]
     Active Substance: ATORVASTATIN CALCIUM
  4. VAGIFEM [Concomitant]
     Active Substance: ESTRADIOL
  5. VELTASSA [Suspect]
     Active Substance: PATIROMER
     Indication: HYPERKALAEMIA
     Route: 048
     Dates: start: 20160825
  6. MICROZIDE [Concomitant]
     Active Substance: HYDROCHLOROTHIAZIDE
  7. ZEBETA [Concomitant]
     Active Substance: BISOPROLOL FUMARATE
  8. FLUTICASONE PROPIONATE. [Concomitant]
     Active Substance: FLUTICASONE PROPIONATE

REACTIONS (2)
  - Blood potassium decreased [Unknown]
  - Off label use [Unknown]

NARRATIVE: CASE EVENT DATE: 20160825
